FAERS Safety Report 16336330 (Version 1)
Quarter: 2019Q2

REPORT INFORMATION
  Report Type: Spontaneous
  Country: US (occurrence: US)
  Receive Date: 20190521
  Receipt Date: 20190521
  Transmission Date: 20190711
  Serious: No
  Sender: FDA-Public Use
  Company Number: US-GLAXOSMITHKLINE-US2019087081

PATIENT
  Sex: Female

DRUGS (1)
  1. VENTOLIN HFA [Suspect]
     Active Substance: ALBUTEROL SULFATE
     Indication: PRODUCT USED FOR UNKNOWN INDICATION
     Dosage: PRN ( WHEN NEEDED)

REACTIONS (5)
  - Wrong technique in device usage process [Unknown]
  - Stent placement [Unknown]
  - Product dose omission [Unknown]
  - Knee operation [Unknown]
  - Cardiac pacemaker insertion [Unknown]
